FAERS Safety Report 9103052 (Version 1)
Quarter: 2013Q1

REPORT INFORMATION
  Report Type: Spontaneous
  Country: DE (occurrence: DE)
  Receive Date: 20130219
  Receipt Date: 20130219
  Transmission Date: 20140127
  Serious: Yes (Hospitalization)
  Sender: FDA-Public Use
  Company Number: GXKR2013DE000875

PATIENT
  Age: 72 Year
  Sex: Male

DRUGS (3)
  1. LEUPRONE HEXAL [Suspect]
     Indication: PROSTATE CANCER
     Dosage: 5 MG, Q3MO
     Route: 058
     Dates: start: 20120730
  2. ZOMETA [Concomitant]
     Indication: METASTASES TO BONE
     Dosage: 4 MG/MONTH
     Route: 042
     Dates: start: 20120903
  3. BICALUTIN [Concomitant]
     Indication: PROSTATE CANCER
     Dosage: 50 MG/DAY
     Route: 048
     Dates: start: 20120703

REACTIONS (2)
  - Transient ischaemic attack [Recovered/Resolved]
  - Altered state of consciousness [Recovered/Resolved]
